FAERS Safety Report 8304201-1 (Version None)
Quarter: 2012Q2

REPORT INFORMATION
  Report Type: 
  Country: None (occurrence: None)
  Receive Date: 20120423
  Receipt Date: 20120413
  Transmission Date: 20120825
  Serious: Yes (Other)
  Sender: FDA-Public Use
  Company Number: US-EISAI INC-E3810-05464-SPO-US

PATIENT
  Sex: Female
  Weight: 45 kg

DRUGS (5)
  1. ACIPHEX [Suspect]
  2. ERYTHROMYCIN [Concomitant]
     Route: 048
     Dates: start: 20120412
  3. ACIPHEX [Suspect]
     Route: 048
     Dates: start: 20120201
  4. ERYTHROMYCIN [Concomitant]
     Indication: CONSTIPATION
     Route: 048
     Dates: start: 20120201, end: 20120201
  5. ACIPHEX [Suspect]

REACTIONS (2)
  - CONSTIPATION [None]
  - WEIGHT DECREASED [None]
